FAERS Safety Report 7568475-7 (Version None)
Quarter: 2011Q2

REPORT INFORMATION
  Report Type: 
  Country: None (occurrence: None)
  Receive Date: 20110623
  Receipt Date: 20110617
  Transmission Date: 20111010
  Serious: Yes (Life-Threatening, Hospitalization)
  Sender: FDA-Public Use
  Company Number: PL-B.I. PHARMACEUTICALS,INC./RIDGEFIELD-2011-AP-00335AP

PATIENT
  Sex: Female
  Weight: 88 kg

DRUGS (1)
  1. MICARDIS HCT [Suspect]
     Indication: ESSENTIAL HYPERTENSION
     Dosage: STRENGTH: 80/25 MG; DAILY DOSE: 1/2 TABL./DAY
     Route: 048
     Dates: start: 20110524, end: 20110531

REACTIONS (4)
  - PULMONARY OEDEMA [None]
  - ANAPHYLACTIC SHOCK [None]
  - DYSPNOEA [None]
  - SKIN REACTION [None]
